FAERS Safety Report 7845000-4 (Version None)
Quarter: 2011Q4

REPORT INFORMATION
  Report Type: 
  Country: None (occurrence: None)
  Receive Date: 20111017
  Receipt Date: 20111004
  Transmission Date: 20120403
  Serious: Yes (Other)
  Sender: FDA-Public Use
  Company Number: WAES 1110USA01329

PATIENT
  Age: 53 Year
  Sex: Female
  Weight: 96.6162 kg

DRUGS (18)
  1. LYRICA [Suspect]
     Indication: NEUROPATHY PERIPHERAL
     Dosage: 150 MG/BID/PO
     Route: 048
     Dates: start: 20100101, end: 20100101
  2. LYRICA [Suspect]
     Indication: NEURALGIA
     Dosage: 150 MG/BID/PO
     Route: 048
     Dates: start: 20100101, end: 20100101
  3. MONOPRIL [Suspect]
  4. VALIUM [Concomitant]
  5. PRINIVIL [Suspect]
     Indication: PRODUCT USED FOR UNKNOWN INDICATION
     Dosage: //PO
     Route: 048
  6. ATACAND [Suspect]
  7. SOMA [Concomitant]
  8. HYDROCHLOROTHIAZIDE [Concomitant]
  9. POTASSIUM [Concomitant]
  10. ATENOLOL [Suspect]
     Indication: NEURALGIA
     Dosage: / / PO ; 150 MG/TID PO ; 175 MG TID/PO ; 100 MG/BID/PO
     Route: 048
     Dates: start: 20100101, end: 20100101
  11. ATENOLOL [Suspect]
     Indication: NEUROPATHY PERIPHERAL
     Dosage: / / PO ; 150 MG/TID PO ; 175 MG TID/PO ; 100 MG/BID/PO
     Route: 048
     Dates: start: 20100101, end: 20100101
  12. ATENOLOL [Suspect]
     Indication: NEURALGIA
     Dosage: / / PO ; 150 MG/TID PO ; 175 MG TID/PO ; 100 MG/BID/PO
     Route: 048
     Dates: start: 20100101
  13. ATENOLOL [Suspect]
     Indication: NEUROPATHY PERIPHERAL
     Dosage: / / PO ; 150 MG/TID PO ; 175 MG TID/PO ; 100 MG/BID/PO
     Route: 048
     Dates: start: 20100101
  14. ATENOLOL [Suspect]
     Indication: NEURALGIA
     Dosage: / / PO ; 150 MG/TID PO ; 175 MG TID/PO ; 100 MG/BID/PO
     Route: 048
     Dates: start: 20100801, end: 20100829
  15. ATENOLOL [Suspect]
     Indication: NEUROPATHY PERIPHERAL
     Dosage: / / PO ; 150 MG/TID PO ; 175 MG TID/PO ; 100 MG/BID/PO
     Route: 048
     Dates: start: 20100801, end: 20100829
  16. METFORMIN HCL [Concomitant]
  17. PERCOCET [Concomitant]
  18. CYMBALTA [Concomitant]

REACTIONS (7)
  - PAIN [None]
  - RENAL IMPAIRMENT [None]
  - FEELING ABNORMAL [None]
  - DRUG EFFECT DECREASED [None]
  - DYSCALCULIA [None]
  - ROAD TRAFFIC ACCIDENT [None]
  - DIABETES MELLITUS [None]
